FAERS Safety Report 8793831 (Version 5)
Quarter: 2013Q3

REPORT INFORMATION
  Report Type: Spontaneous
  Country: US (occurrence: US)
  Receive Date: 20120918
  Receipt Date: 20130724
  Transmission Date: 20140515
  Serious: No
  Sender: FDA-Public Use
  Company Number: US-009507513-1209USA005799

PATIENT
  Age: 52 Year
  Sex: Female

DRUGS (9)
  1. VICTRELIS [Suspect]
     Indication: HEPATITIS C
     Dosage: UNK
     Dates: start: 20120907, end: 20130524
  2. REBETOL [Suspect]
     Indication: HEPATITIS C
     Dosage: 1200 MG, QD
     Dates: start: 20120810
  3. REBETOL [Suspect]
     Dosage: 600 MG, QD
     Dates: start: 2012
  4. REBETOL [Suspect]
     Dosage: 3 PILLS A DAY
     Route: 048
  5. REBETOL [Suspect]
     Dosage: UNK
     Route: 048
     Dates: end: 20130524
  6. PEGASYS [Suspect]
     Indication: HEPATITIS C
     Dosage: UNK
     Dates: start: 20120810, end: 20130524
  7. XARELTO [Concomitant]
  8. COUMADIN [Concomitant]
  9. PROCRIT [Concomitant]
     Indication: RED BLOOD CELL COUNT DECREASED

REACTIONS (34)
  - Back pain [Unknown]
  - Angiopathy [Unknown]
  - Pain [Unknown]
  - Memory impairment [Unknown]
  - Bruxism [Unknown]
  - Crying [Unknown]
  - Agitation [Unknown]
  - Pollakiuria [Unknown]
  - Limb injury [Unknown]
  - Contusion [Unknown]
  - International normalised ratio decreased [Unknown]
  - Fatigue [Unknown]
  - Red blood cell count decreased [Unknown]
  - Arthralgia [Unknown]
  - Haemoglobin decreased [Unknown]
  - Nausea [Unknown]
  - Pain [Unknown]
  - Agitation [Unknown]
  - Weight decreased [Unknown]
  - Laboratory test abnormal [Unknown]
  - Anaemia [Unknown]
  - Haemoglobin decreased [Unknown]
  - Myalgia [Unknown]
  - Pain [Unknown]
  - Dry skin [Unknown]
  - Depression [Unknown]
  - Blood iron decreased [Unknown]
  - Dry skin [Unknown]
  - Asthenia [Unknown]
  - Dizziness [Unknown]
  - Anger [Unknown]
  - Pain in extremity [Unknown]
  - Vertigo [Unknown]
  - Memory impairment [Unknown]
